FAERS Safety Report 7207283-3 (Version None)
Quarter: 2010Q4

REPORT INFORMATION
  Report Type: 
  Country: None (occurrence: None)
  Receive Date: 20101230
  Receipt Date: 20101230
  Transmission Date: 20110411
  Serious: Yes (Other)
  Sender: FDA-Public Use
  Company Number: None

PATIENT
  Age: 66 Year
  Sex: Female
  Weight: 68.0396 kg

DRUGS (2)
  1. VIMPAT [Suspect]
     Indication: MIGRAINE
     Dosage: 50MG. ONCE A DAY PO
     Route: 048
     Dates: start: 20101206, end: 20101220
  2. VIMPAT [Suspect]
     Indication: PROPHYLAXIS
     Dosage: 50MG. ONCE A DAY PO
     Route: 048
     Dates: start: 20101206, end: 20101220

REACTIONS (4)
  - DYSPNOEA [None]
  - PALPITATIONS [None]
  - PRESYNCOPE [None]
  - VENTRICULAR EXTRASYSTOLES [None]
